FAERS Safety Report 23419408 (Version 1)
Quarter: 2024Q1

REPORT INFORMATION
  Report Type: Spontaneous
  Country: IT (occurrence: IT)
  Receive Date: 20240118
  Receipt Date: 20240118
  Transmission Date: 20240409
  Serious: Yes (Hospitalization)
  Sender: FDA-Public Use
  Company Number: None

PATIENT
  Age: 48 Year
  Sex: Female

DRUGS (3)
  1. TYSABRI [Suspect]
     Active Substance: NATALIZUMAB
     Indication: Multiple sclerosis
     Route: 050
  2. ESTRADIOL\NOMEGESTROL ACETATE [Suspect]
     Active Substance: ESTRADIOL\NOMEGESTROL ACETATE
     Indication: Menstruation irregular
     Dosage: UNA CPR AL GIORNO
     Route: 050
     Dates: start: 20221223
  3. ESTRADIOL\NOMEGESTROL ACETATE [Suspect]
     Active Substance: ESTRADIOL\NOMEGESTROL ACETATE
     Dosage: UNA CPR AL GIORNO
     Route: 050

REACTIONS (1)
  - Cerebrovascular accident [Recovered/Resolved]

NARRATIVE: CASE EVENT DATE: 20231120
